FAERS Safety Report 7734260-6 (Version None)
Quarter: 2011Q3

REPORT INFORMATION
  Report Type: 
  Country: None (occurrence: None)
  Receive Date: 20110907
  Receipt Date: 20110902
  Transmission Date: 20111222
  Serious: Yes (Death, Hospitalization)
  Sender: FDA-Public Use
  Company Number: SE-BAYER-2011-026097

PATIENT
  Age: 74 Year
  Sex: Male
  Weight: 65 kg

DRUGS (7)
  1. METOPROLOL [Concomitant]
     Indication: HYPERTENSION
     Dosage: DAILY DOSE 100 MG
     Route: 048
     Dates: start: 19810101
  2. ALFUZOSIN HCL [Concomitant]
     Indication: BENIGN PROSTATIC HYPERPLASIA
     Dosage: DAILY DOSE 10 MG
     Route: 048
     Dates: start: 20010101
  3. SORAFENIB (RAF KINASE INHIBITOR) [Suspect]
     Indication: HEPATIC NEOPLASM MALIGNANT
     Dosage: 400 MG
     Route: 048
     Dates: start: 20110323, end: 20110324
  4. ALPRAZOLAM [Concomitant]
     Indication: ANXIETY
     Dosage: 0.5 MG, PRN
     Route: 048
     Dates: start: 20110323
  5. FELODIPINE [Concomitant]
     Indication: HYPERTENSION
     Dosage: DAILY DOSE 5 MG
     Route: 048
     Dates: start: 19810101
  6. HYDROXYZINE [Concomitant]
     Indication: PRURITUS
     Dosage: 25 MG, PRN
     Dates: start: 20110118
  7. HYDROXYZINE [Concomitant]
     Indication: ANXIETY

REACTIONS (2)
  - PAIN IN EXTREMITY [None]
  - MUSCLE HAEMORRHAGE [None]
